FAERS Safety Report 18946540 (Version 1)
Quarter: 2021Q1

REPORT INFORMATION
  Report Type: Spontaneous
  Country: US (occurrence: US)
  Receive Date: 20210226
  Receipt Date: 20210226
  Transmission Date: 20210420
  Serious: No
  Sender: FDA-Public Use
  Company Number: US-TAKEDA-2021TUS012189

PATIENT
  Sex: Female

DRUGS (3)
  1. BRIGATINIB [Suspect]
     Active Substance: BRIGATINIB
     Indication: METASTASES TO BONE
     Dosage: 90 MILLIGRAM, QD
     Route: 065
  2. BRIGATINIB [Suspect]
     Active Substance: BRIGATINIB
     Indication: MALIGNANT NERVOUS SYSTEM NEOPLASM
  3. BRIGATINIB [Suspect]
     Active Substance: BRIGATINIB
     Indication: COLON CANCER

REACTIONS (2)
  - No adverse event [Unknown]
  - Off label use [Unknown]
